FAERS Safety Report 8522867-8 (Version None)
Quarter: 2012Q3

REPORT INFORMATION
  Report Type: 
  Country: None (occurrence: None)
  Receive Date: 20120720
  Receipt Date: 20120711
  Transmission Date: 20120928
  Serious: Yes (Hospitalization)
  Sender: FDA-Public Use
  Company Number: US-BIOGENIDEC-2012BI023887

PATIENT
  Age: 48 Year
  Sex: Female

DRUGS (1)
  1. TYSABRI [Suspect]
     Indication: MULTIPLE SCLEROSIS
     Route: 042
     Dates: start: 20111014, end: 20120531

REACTIONS (5)
  - APHASIA [None]
  - GAIT DISTURBANCE [None]
  - CENTRAL NERVOUS SYSTEM LESION [None]
  - WEIGHT DECREASED [None]
  - GENERAL SYMPTOM [None]
